FAERS Safety Report 7233441-8 (Version None)
Quarter: 2011Q1

REPORT INFORMATION
  Report Type: 
  Country: None (occurrence: None)
  Receive Date: 20110107
  Receipt Date: 20101223
  Transmission Date: 20110831
  Serious: Yes (Hospitalization, Other)
  Sender: FDA-Public Use
  Company Number: AUR-APL-2010-03091

PATIENT
  Age: 22 Year
  Sex: Female

DRUGS (8)
  1. CLONIDINE [Concomitant]
  2. TIZANIDINE [Concomitant]
  3. GABAPENTIN [Concomitant]
  4. BROMIDE [Concomitant]
  5. OXYCODONE HCL AND ACETAMINOPHEN [Concomitant]
  6. METOPROLOL TARTRATE [Concomitant]
  7. PYRIDOSTIGMINE BROMIDE [Concomitant]
  8. TOPIRAMATE [Suspect]
     Indication: MIGRAINE
     Dosage: 400 MG -PRN-UNK

REACTIONS (17)
  - APHASIA [None]
  - SCREAMING [None]
  - ANXIETY [None]
  - RENAL TUBULAR ACIDOSIS [None]
  - BLOOD CHLORIDE INCREASED [None]
  - AUTONOMIC NERVOUS SYSTEM IMBALANCE [None]
  - TOXICITY TO VARIOUS AGENTS [None]
  - BLOOD BICARBONATE DECREASED [None]
  - HEADACHE [None]
  - DISCOMFORT [None]
  - DISORIENTATION [None]
  - CONFUSIONAL STATE [None]
  - AMNESIA [None]
  - METABOLIC ACIDOSIS [None]
  - MENTAL STATUS CHANGES [None]
  - RESPIRATORY ALKALOSIS [None]
  - PH URINE INCREASED [None]
